FAERS Safety Report 23193206 (Version 1)
Quarter: 2023Q4

REPORT INFORMATION
  Report Type: Spontaneous
  Country: US (occurrence: None)
  Receive Date: 20231115
  Receipt Date: 20231115
  Transmission Date: 20240110
  Serious: Yes (Hospitalization)
  Sender: FDA-Public Use
  Company Number: None

PATIENT
  Age: 73 Year
  Sex: Male

DRUGS (13)
  1. MYCOPHENOLIC ACID [Suspect]
     Active Substance: MYCOPHENOLIC ACID
     Indication: Renal transplant
     Dosage: 360MG ORAL??MYCOPHENOLIC ACID:  TK 1 T  PO Q 12 H
     Route: 048
     Dates: start: 20220708
  2. ENVARSUS XR [Suspect]
     Active Substance: TACROLIMUS
     Indication: Renal transplant
     Dosage: 1MG ORAL??ENVARSUS XR: TK 3 TS PO QD? ?
     Route: 048
     Dates: start: 20220927
  3. DOCUSATE SOD [Concomitant]
  4. ELIQUIS [Concomitant]
  5. OXAZEPAM [Concomitant]
  6. ROSUVASTATIN [Concomitant]
  7. SERTRALINE [Concomitant]
  8. FLUOROURACIL [Concomitant]
     Active Substance: FLUOROURACIL
  9. ALLOPURINOL [Concomitant]
  10. LEVOTHYROXINE 0.075MG [Concomitant]
  11. PANTOPRAZOLE [Concomitant]
  12. THIAMINE HYDROCHLORIDE [Concomitant]
     Active Substance: THIAMINE HYDROCHLORIDE
  13. VITAMIN D3 [Concomitant]

REACTIONS (1)
  - Hospitalisation [None]
